FAERS Safety Report 4876529-9 (Version None)
Quarter: 2006Q1

REPORT INFORMATION
  Report Type: 
  Country: None (occurrence: None)
  Receive Date: 20060110
  Receipt Date: 20051230
  Transmission Date: 20060701
  Serious: Yes (Other)
  Sender: FDA-Public Use
  Company Number: GB-GLAXOSMITHKLINE-B0405294A

PATIENT
  Sex: Male

DRUGS (15)
  1. SEROXAT [Suspect]
     Route: 065
     Dates: start: 19951005
  2. AMITRIPTYLINE HCL [Concomitant]
     Route: 065
  3. FLUDROCORTISONE [Concomitant]
     Indication: SYNCOPE
     Route: 065
     Dates: start: 19961001, end: 20010101
  4. DICLOFENAC [Concomitant]
     Route: 065
  5. ZOLPIDEM TARTRATE [Concomitant]
     Route: 065
  6. FENOFIBRATE [Concomitant]
     Route: 065
  7. GABAPENTIN [Concomitant]
     Route: 065
  8. TADALAFIL [Concomitant]
     Route: 065
  9. DIAZEPAM [Concomitant]
     Route: 065
  10. METFORMIN [Concomitant]
     Route: 065
  11. BISOPROLOL [Concomitant]
     Route: 065
  12. ASPIRIN [Concomitant]
     Route: 065
  13. FLUPENTHIXOL [Concomitant]
     Route: 065
  14. ATORVASTATIN [Concomitant]
     Route: 065
  15. BUPRENORPHINE [Concomitant]
     Route: 065

REACTIONS (11)
  - AGGRESSION [None]
  - AGITATION [None]
  - ANGER [None]
  - COMPLETED SUICIDE [None]
  - DEATH OF CHILD [None]
  - DEPRESSED MOOD [None]
  - DRUG EFFECT DECREASED [None]
  - DRUG WITHDRAWAL SYNDROME [None]
  - EJACULATION FAILURE [None]
  - SENSORY DISTURBANCE [None]
  - SYNCOPE [None]
